FAERS Safety Report 9435806 (Version 1)
Quarter: 2013Q3

REPORT INFORMATION
  Report Type: Spontaneous
  Country: US (occurrence: None)
  Receive Date: 20130801
  Receipt Date: 20130801
  Transmission Date: 20140515
  Serious: No
  Sender: FDA-Public Use
  Company Number: None

PATIENT
  Sex: Male
  Weight: 70.76 kg

DRUGS (7)
  1. HYALURONIC ACID [Suspect]
     Indication: OSTEOARTHRITIS
     Dates: start: 20130412, end: 20130521
  2. FENTANYL [Concomitant]
  3. PROTONIX [Concomitant]
  4. TOPROL XL [Concomitant]
  5. PHENERGARN NORVASE [Concomitant]
  6. LISINOPRIL [Concomitant]
  7. CRESTOR [Concomitant]

REACTIONS (2)
  - Abdominal pain upper [None]
  - Sleep disorder [None]
